FAERS Safety Report 10076842 (Version 1)
Quarter: 2014Q2

REPORT INFORMATION
  Report Type: Spontaneous
  Country: US (occurrence: None)
  Receive Date: 20140410
  Receipt Date: 20140410
  Transmission Date: 20141212
  Serious: Yes (Death)
  Sender: FDA-Public Use
  Company Number: UTC-046773

PATIENT
  Age: 61 Year
  Sex: Female

DRUGS (1)
  1. TYVASO (0.6 MILLIGRAM/MILLILITERS, AEROSOL FOR INHALATION) (TREPROSTINIL SODIUM) [Suspect]
     Indication: PULMONARY ARTERIAL HYPERTENSION
     Dosage: 288 UG/KG (72 UG/KG, 4 IN 1 D), INHALATION
     Route: 055
     Dates: start: 20130119, end: 20140316

REACTIONS (1)
  - Cardiac arrest [None]
